FAERS Safety Report 6551048-2 (Version None)
Quarter: 2010Q1

REPORT INFORMATION
  Report Type: 
  Country: None (occurrence: None)
  Receive Date: 20100125
  Receipt Date: 20100113
  Transmission Date: 20100710
  Serious: Yes (Hospitalization)
  Sender: FDA-Public Use
  Company Number: KR-GILEAD-E2B_00000554

PATIENT
  Age: 48 Year
  Sex: Male

DRUGS (4)
  1. HEPSERA [Suspect]
     Indication: HEPATITIS B
     Dosage: 10MG PER DAY
     Route: 048
     Dates: start: 20060619, end: 20060919
  2. VITAMIN B COMPLEX CAP [Concomitant]
     Dates: start: 20060112, end: 20060914
  3. SPIRONOLACTONE [Concomitant]
     Indication: DIURETIC THERAPY
     Dates: start: 20060522, end: 20060914
  4. FUROSEMIDE [Concomitant]
     Indication: DIURETIC THERAPY
     Dates: start: 20060522, end: 20060914

REACTIONS (4)
  - ABDOMINAL PAIN [None]
  - HEPATIC ENCEPHALOPATHY [None]
  - MUSCLE SPASMS [None]
  - PARAESTHESIA [None]
